FAERS Safety Report 6584871-9 (Version None)
Quarter: 2010Q1

REPORT INFORMATION
  Report Type: 
  Country: None (occurrence: None)
  Receive Date: 20100125
  Receipt Date: 20091112
  Transmission Date: 20100710
  Serious: Yes (Hospitalization)
  Sender: FDA-Public Use
  Company Number: 2009BI030310

PATIENT
  Age: 51 Year
  Sex: Female
  Weight: 93.8946 kg

DRUGS (4)
  1. TYSABRI [Suspect]
     Indication: MULTIPLE SCLEROSIS
     Dosage: 300 MG;QM;IV
     Route: 042
     Dates: start: 20070802
  2. ASPIRIN [Concomitant]
  3. MULTI-VITAMINS [Concomitant]
  4. AVONEX [Concomitant]

REACTIONS (15)
  - ABDOMINAL PAIN UPPER [None]
  - DERMAL CYST [None]
  - DYSPNOEA [None]
  - GASTROINTESTINAL DISORDER [None]
  - GROIN PAIN [None]
  - INDURATION [None]
  - INVESTIGATION ABNORMAL [None]
  - MEMORY IMPAIRMENT [None]
  - NARCOLEPSY [None]
  - NAUSEA [None]
  - OROPHARYNGEAL DISCOMFORT [None]
  - OVARIAN CYST [None]
  - PAIN IN EXTREMITY [None]
  - PAIN IN JAW [None]
  - URINARY TRACT INFECTION [None]
